FAERS Safety Report 9563554 (Version 3)
Quarter: 2013Q4

REPORT INFORMATION
  Report Type: Spontaneous
  Country: AU (occurrence: None)
  Receive Date: 20130926
  Receipt Date: 20131016
  Transmission Date: 20140711
  Serious: Yes (Hospitalization, Other)
  Sender: FDA-Public Use
  Company Number: AUR-APL-2013-07811

PATIENT
  Age: 64 Year
  Sex: Male
  Weight: 147 kg

DRUGS (19)
  1. CANDESARTAN [Suspect]
     Indication: PRODUCT USED FOR UNKNOWN INDICATION
  2. METFORMIN [Suspect]
     Indication: PRODUCT USED FOR UNKNOWN INDICATION
  3. INSPRA [Suspect]
     Indication: PRODUCT USED FOR UNKNOWN INDICATION
     Dates: start: 20110927, end: 20130101
  4. FRUSEMIDE [Suspect]
     Indication: PRODUCT USED FOR UNKNOWN INDICATION
  5. GLICLAZIDE [Suspect]
     Indication: PRODUCT USED FOR UNKNOWN INDICATION
  6. PERHEXILINE MALEATE [Suspect]
     Indication: PRODUCT USED FOR UNKNOWN INDICATION
  7. COPLAVIX (NEFAZAN COMPUESTO) [Concomitant]
  8. DIGOXIN (DIGOXIN) [Concomitant]
  9. EZETIMIBE (EZETIMIBE) [Concomitant]
  10. HYDRALAZINE HYDROCHLORIDE (HYDRALAZINE HYDROCHLORIDE) [Concomitant]
  11. INSULIN (INSULIN) [Concomitant]
  12. IVABRADINE (IVABRADINE) [Concomitant]
  13. NICORANDIL (NICORANDIL) [Concomitant]
  14. PRAZOSIN HYDROCHLORIDE (PRAZOSIN HYDROCHLORIDE) [Concomitant]
  15. QUINAPRIL HYDROCHLORIDE (QUINAPRIL HYDROCHLORIDE) [Concomitant]
  16. ROSUVASTATIN (ROSUVASTATIN) [Concomitant]
  17. NOVORAPID (NOVORAPID) [Concomitant]
  18. SOTALOL (SOTALOL) [Concomitant]
  19. CARVEDILOL (CARVEDILOL) [Concomitant]

REACTIONS (2)
  - Renal failure acute [None]
  - Presyncope [None]
